FAERS Safety Report 4645356-X (Version None)
Quarter: 2005Q2

REPORT INFORMATION
  Report Type: 
  Country: None (occurrence: None)
  Receive Date: 20050425
  Receipt Date: 20050411
  Transmission Date: 20051028
  Serious: Yes (Hospitalization, Other)
  Sender: FDA-Public Use
  Company Number: 2005058765

PATIENT
  Age: 48 Year
  Sex: Female

DRUGS (2)
  1. BEXTRA [Suspect]
     Indication: SHOULDER OPERATION
     Dosage: 40 MG (40 MG, 1 IN 1 D), ORAL
     Route: 048
     Dates: start: 20030428
  2. CELEBREX [Suspect]
     Indication: SURGERY
     Dosage: 200 MG (200 MG, 1 IN 1 D), ORAL
     Route: 048
     Dates: start: 20031217

REACTIONS (7)
  - ARTHROPATHY [None]
  - BLISTER [None]
  - IMPAIRED HEALING [None]
  - JOINT ARTHROPLASTY [None]
  - MUSCLE DISORDER [None]
  - PRURITUS GENERALISED [None]
  - SURGICAL PROCEDURE REPEATED [None]
